FAERS Safety Report 10266765 (Version 1)
Quarter: 2014Q2

REPORT INFORMATION
  Report Type: Spontaneous
  Country: US (occurrence: None)
  Receive Date: 20140625
  Receipt Date: 20140625
  Transmission Date: 20141212
  Serious: Yes (Life-Threatening)
  Sender: FDA-Public Use
  Company Number: None

PATIENT
  Age: 51 Year
  Sex: Female
  Weight: 105.69 kg

DRUGS (5)
  1. DICLOFENAC SODIUM DELAYED RELEASE [Suspect]
     Indication: ADVERSE REACTION
     Dosage: I TAB TWICE A DAY TWICE DAILY TAKEN BY MOUTH
     Route: 048
     Dates: start: 20140602
  2. THYROXINE [Concomitant]
  3. PRILOSEC [Concomitant]
  4. TRAMADOL [Concomitant]
  5. ALEVE [Concomitant]

REACTIONS (3)
  - Dyspnoea [None]
  - Asthenia [None]
  - Heart rate abnormal [None]
